FAERS Safety Report 9460797 (Version 3)
Quarter: 2015Q1

REPORT INFORMATION
  Report Type: Report from Study
  Country: JP (occurrence: JP)
  Receive Date: 20130815
  Receipt Date: 20150306
  Transmission Date: 20150721
  Serious: Yes (Hospitalization, Other)
  Sender: FDA-Public Use
  Company Number: JP-009507513-1308JPN004607

PATIENT
  Age: 81 Year
  Sex: Male

DRUGS (12)
  1. GLACTIV [Suspect]
     Active Substance: SITAGLIPTIN
     Indication: TYPE 2 DIABETES MELLITUS
     Dosage: 25 MG, ONCE A DAY
     Route: 048
     Dates: start: 20120523, end: 20130215
  2. BUFFERIN [Concomitant]
     Active Substance: ASPIRIN
     Dosage: UNK
  3. FEROTYM [Concomitant]
     Active Substance: FERROUS CITRATE\SODIUM
  4. DEPAS [Concomitant]
     Active Substance: ETIZOLAM
  5. LENDORMIN [Concomitant]
     Active Substance: BROTIZOLAM
  6. CONIEL [Concomitant]
     Active Substance: BENIDIPINE HYDROCHLORIDE
  7. NU-LOTAN [Concomitant]
     Active Substance: LOSARTAN POTASSIUM
  8. TICLOPIDINE HYDROCHLORIDE. [Concomitant]
     Active Substance: TICLOPIDINE HYDROCHLORIDE
  9. MAGMITT [Concomitant]
     Active Substance: MAGNESIUM OXIDE
  10. CRESTOR [Concomitant]
     Active Substance: ROSUVASTATIN CALCIUM
  11. LANTUS [Concomitant]
     Active Substance: INSULIN GLARGINE
     Dosage: UNK
  12. OMEPRAZOLE. [Concomitant]
     Active Substance: OMEPRAZOLE
     Dosage: UNK
     Route: 048

REACTIONS (2)
  - Diabetes mellitus [Not Recovered/Not Resolved]
  - Dislocation of vertebra [Recovering/Resolving]

NARRATIVE: CASE EVENT DATE: 201212
